FAERS Safety Report 8702822 (Version 2)
Quarter: 2013Q4

REPORT INFORMATION
  Report Type: Spontaneous
  Country: IE (occurrence: IE)
  Receive Date: 20120803
  Receipt Date: 20131031
  Transmission Date: 20140711
  Serious: Yes (Death)
  Sender: FDA-Public Use
  Company Number: IE-009507513-86010445

PATIENT
  Age: 70 Year
  Sex: Female

DRUGS (1)
  1. SINEMET [Suspect]
     Indication: PARKINSON^S DISEASE
     Dosage: 8 MG, UNK
     Route: 048

REACTIONS (2)
  - Chondropathy [Fatal]
  - Chromaturia [Fatal]
